FAERS Safety Report 24432219 (Version 1)
Quarter: 2024Q4

REPORT INFORMATION
  Report Type: Spontaneous
  Country: PL (occurrence: PL)
  Receive Date: 20241014
  Receipt Date: 20241014
  Transmission Date: 20250115
  Serious: Yes (Hospitalization)
  Sender: TEVA
  Company Number: None

PATIENT
  Age: 59 Year
  Sex: Female
  Weight: 70 kg

DRUGS (3)
  1. TENOFOVIR [Suspect]
     Active Substance: TENOFOVIR
     Indication: Prophylaxis against HIV infection
     Route: 048
     Dates: start: 20190722, end: 20190801
  2. RITONAVIR [Suspect]
     Active Substance: RITONAVIR
     Indication: Prophylaxis against HIV infection
     Route: 048
     Dates: start: 20190722, end: 20190801
  3. DARUNAVIR [Suspect]
     Active Substance: DARUNAVIR
     Indication: Prophylaxis against HIV infection
     Route: 048
     Dates: start: 20190722, end: 20190801

REACTIONS (2)
  - Pyrexia [Recovering/Resolving]
  - Rash maculo-papular [Recovering/Resolving]

NARRATIVE: CASE EVENT DATE: 20190731
